FAERS Safety Report 21515104 (Version 3)
Quarter: 2023Q1

REPORT INFORMATION
  Report Type: Report from Study
  Country: FR (occurrence: FR)
  Receive Date: 20221027
  Receipt Date: 20230104
  Transmission Date: 20230418
  Serious: Yes (Hospitalization, Other)
  Sender: FDA-Public Use
  Company Number: FR-VERTEX PHARMACEUTICALS-2022-015895

PATIENT
  Age: 31 Year
  Sex: Male
  Weight: 88 kg

DRUGS (16)
  1. ELEXACAFTOR\IVACAFTOR\TEZACAFTOR [Suspect]
     Active Substance: ELEXACAFTOR\IVACAFTOR\TEZACAFTOR
     Indication: Cystic fibrosis
     Dosage: (200MG ELEXACAFTOR/ 100MG TEZACAFTOR/ 150 MG IVACAFTOR) QD, (75 MG IVACAFTOR) QD
     Route: 048
     Dates: start: 20220912
  2. ELEXACAFTOR\IVACAFTOR\TEZACAFTOR [Suspect]
     Active Substance: ELEXACAFTOR\IVACAFTOR\TEZACAFTOR
     Dosage: (200MG ELEXACAFTOR/ 100MG TEZACAFTOR/ 150 MG IVACAFTOR) QD, (75 MG IVACAFTOR) QD
     Route: 048
     Dates: start: 20220912
  3. ELEXACAFTOR\IVACAFTOR\TEZACAFTOR [Suspect]
     Active Substance: ELEXACAFTOR\IVACAFTOR\TEZACAFTOR
     Dosage: (200MG ELEXACAFTOR/ 100MG TEZACAFTOR/ 150 MG IVACAFTOR) QD, (75 MG IVACAFTOR) QD
     Route: 048
     Dates: start: 20220912
  4. ELEXACAFTOR\IVACAFTOR\TEZACAFTOR [Suspect]
     Active Substance: ELEXACAFTOR\IVACAFTOR\TEZACAFTOR
     Dosage: (200MG ELEXACAFTOR/ 100MG TEZACAFTOR/ 150 MG IVACAFTOR) QD, (75 MG IVACAFTOR) QD
     Route: 048
     Dates: start: 20220912
  5. DORNASE ALFA [Concomitant]
     Active Substance: DORNASE ALFA
     Indication: Cystic fibrosis lung
     Dosage: 2500 U, QD
     Dates: start: 19970528
  6. PANCREATIN [Concomitant]
     Active Substance: PANCRELIPASE
     Indication: Cystic fibrosis lung
     Dosage: 100,000 U, BID
     Route: 048
     Dates: start: 20010829, end: 20221010
  7. FLUTICASONE [Concomitant]
     Active Substance: FLUTICASONE
     Indication: Cystic fibrosis lung
     Dosage: 500 MG, BID
     Dates: start: 20030703
  8. SALMETEROL [Concomitant]
     Active Substance: SALMETEROL
     Indication: Cystic fibrosis lung
     Dosage: 50 MG, BID
     Dates: start: 20030703
  9. CHOLECALCIFEROL [Concomitant]
     Active Substance: CHOLECALCIFEROL
     Indication: Hypovitaminosis
     Dosage: 100000 UI, ONCE A MONTH
     Route: 048
     Dates: start: 20090529
  10. ESOMEPRAZOLE [Concomitant]
     Active Substance: ESOMEPRAZOLE
     Indication: Gastrooesophageal reflux disease
     Dosage: 40 MG, QD
     Route: 048
     Dates: start: 20160225
  11. URSODIOL [Concomitant]
     Active Substance: URSODIOL
     Indication: Pancreatitis
     Dosage: 500 MG, BID
     Route: 048
     Dates: start: 20220425
  12. DIFLUCORTOLONE [Concomitant]
     Active Substance: DIFLUCORTOLONE
     Indication: Eczema
     Dosage: 0.1 %, QD
     Route: 061
     Dates: start: 20220808, end: 20221006
  13. AMOROLFINE [Concomitant]
     Active Substance: AMOROLFINE
     Indication: Eczema
     Dosage: 5 %, ONCE A WEEK
     Route: 061
     Dates: start: 20220808, end: 20221006
  14. NIRMATRELVIR [Concomitant]
     Active Substance: NIRMATRELVIR
     Indication: COVID-19
     Dosage: 300 MG, BID
     Route: 048
     Dates: start: 20220929, end: 20221004
  15. RITONAVIR [Concomitant]
     Active Substance: RITONAVIR
     Indication: COVID-19
     Dosage: 100 MG, BID
     Route: 048
     Dates: start: 20220929, end: 20221004
  16. CLOBETASOL PROPIONATE [Concomitant]
     Active Substance: CLOBETASOL PROPIONATE
     Indication: Psoriasis
     Dosage: UNK
     Route: 061
     Dates: start: 20221026

REACTIONS (1)
  - Subileus [Recovered/Resolved]

NARRATIVE: CASE EVENT DATE: 20221020
